FAERS Safety Report 13408842 (Version 4)
Quarter: 2021Q2

REPORT INFORMATION
  Report Type: Spontaneous
  Country: US (occurrence: US)
  Receive Date: 20170406
  Receipt Date: 20210530
  Transmission Date: 20210716
  Serious: No
  Sender: FDA-Public Use
  Company Number: US-JNJFOC-20170225417

PATIENT
  Age: 11 Year
  Sex: Male

DRUGS (7)
  1. RISPERDAL [Suspect]
     Active Substance: RISPERIDONE
     Route: 048
     Dates: start: 20110630, end: 2012
  2. RISPERDAL [Suspect]
     Active Substance: RISPERIDONE
     Dosage: 1 MG; 01 TO 02 TABLETS EVERY BED TIME
     Route: 048
     Dates: start: 19970815
  3. RISPERDAL [Suspect]
     Active Substance: RISPERIDONE
     Route: 048
     Dates: start: 19980707, end: 19981216
  4. RISPERDAL [Suspect]
     Active Substance: RISPERIDONE
     Route: 048
     Dates: start: 19990218, end: 20000131
  5. RISPERDAL [Suspect]
     Active Substance: RISPERIDONE
     Indication: HALLUCINATION, AUDITORY
     Route: 048
     Dates: start: 19970729
  6. RISPERDAL [Suspect]
     Active Substance: RISPERIDONE
     Dosage: 1MG; 02 TABLETS AT EVERY BED TIME
     Route: 048
     Dates: start: 19980108, end: 19980512
  7. RISPERDAL [Suspect]
     Active Substance: RISPERIDONE
     Route: 048
     Dates: start: 19970924

REACTIONS (4)
  - Weight increased [Unknown]
  - Emotional disorder [Unknown]
  - Somnolence [Unknown]
  - Gynaecomastia [Unknown]

NARRATIVE: CASE EVENT DATE: 19990325
